FAERS Safety Report 6923796-3 (Version None)
Quarter: 2010Q3

REPORT INFORMATION
  Report Type: 
  Country: None (occurrence: None)
  Receive Date: 20100813
  Receipt Date: 20100803
  Transmission Date: 20110219
  Serious: Yes (Hospitalization, Other)
  Sender: FDA-Public Use
  Company Number: US-ELI_LILLY_AND_COMPANY-US201006007119

PATIENT
  Age: 35 Year
  Sex: Male
  Weight: 96.599 kg

DRUGS (1)
  1. ZYPREXA ZYDIS [Suspect]
     Indication: PSYCHOTIC DISORDER
     Dosage: 15 MG, DAILY (1/D)
     Dates: start: 20100514, end: 20100617

REACTIONS (2)
  - DYSURIA [None]
  - NEUROLEPTIC MALIGNANT SYNDROME [None]
